FAERS Safety Report 9921706 (Version 1)
Quarter: 2014Q1

REPORT INFORMATION
  Report Type: Spontaneous
  Country: BE (occurrence: BE)
  Receive Date: 20140225
  Receipt Date: 20140225
  Transmission Date: 20141002
  Serious: Yes (Life-Threatening, Disabling, Other)
  Sender: FDA-Public Use
  Company Number: BE-BAYER-2014-023394

PATIENT
  Age: 85 Year
  Sex: Female
  Weight: 54 kg

DRUGS (2)
  1. AVELOX [Suspect]
     Indication: PNEUMONIA
     Dosage: 400 MG, QD
     Route: 048
     Dates: start: 20140108, end: 20140111
  2. L-THYROXINE [Concomitant]
     Indication: HYPOTHYROIDISM

REACTIONS (6)
  - Renal failure acute [Recovering/Resolving]
  - Anuria [Recovering/Resolving]
  - Renal function test abnormal [Recovering/Resolving]
  - Tubulointerstitial nephritis [None]
  - Renal tubular necrosis [None]
  - General physical health deterioration [None]
